FAERS Safety Report 8285886 (Version 2)
Quarter: 2012Q4

REPORT INFORMATION
  Report Type: 
  Country: US (occurrence: US)
  Receive Date: 20111213
  Receipt Date: 20121113
  Transmission Date: 20130627
  Serious: No
  Sender: FDA-Public Use
  Company Number: US-AMGEN-USASP2011033308

PATIENT
  Sex: Female
  Weight: 109 kg

DRUGS (2)
  1. ARANESP [Suspect]
     Indication: MYELODYSPLASTIC SYNDROME
     Dosage: 300 mug, q2wk
     Route: 058
     Dates: start: 20110901, end: 20111028
  2. VITAMIN B12 [Concomitant]
     Dosage: UNK
     Dates: start: 20110929

REACTIONS (1)
  - Drug screen positive [Recovered/Resolved]
